FAERS Safety Report 4780772-7 (Version None)
Quarter: 2005Q3

REPORT INFORMATION
  Report Type: 
  Country: None (occurrence: None)
  Receive Date: 20050920
  Receipt Date: 20050906
  Transmission Date: 20060218
  Serious: Yes (Disabling)
  Sender: FDA-Public Use
  Company Number: 200510351BCA

PATIENT
  Age: 35 Month
  Sex: Male
  Weight: 15 kg

DRUGS (4)
  1. KOGENATE FS [Suspect]
     Dosage: 500 IU, TOTAL DAILY
     Dates: start: 20050319
  2. KOGENATE FS [Suspect]
     Dosage: 500 IU, TOTAL DAILY
     Dates: start: 20050505
  3. KOGENATE FS [Suspect]
  4. KOGENATE FS [Suspect]
     Dosage: 5000 IU, TOTAL DAILY, UNK
     Dates: start: 20050525

REACTIONS (4)
  - DRUG ADMINISTRATION ERROR [None]
  - DRUG INEFFECTIVE [None]
  - FACTOR VIII INHIBITION [None]
  - HAEMORRHAGE [None]
